FAERS Safety Report 16645701 (Version 3)
Quarter: 2020Q4

REPORT INFORMATION
  Report Type: Spontaneous
  Country: CA (occurrence: CA)
  Receive Date: 20190730
  Receipt Date: 20201002
  Transmission Date: 20210113
  Serious: Yes (Hospitalization, Other)
  Sender: FDA-Public Use
  Company Number: CA-ABBVIE-19K-028-2867275-00

PATIENT
  Age: 57 Year
  Sex: Male
  Weight: 75 kg

DRUGS (24)
  1. INFLECTRA [Suspect]
     Active Substance: INFLIXIMAB-DYYB
     Dosage: 10 MG/KG AS A BOOSTER DOSE
     Route: 042
     Dates: start: 20191015, end: 20191015
  2. CHOLESTYRAMINE. [Concomitant]
     Active Substance: CHOLESTYRAMINE
     Indication: PRODUCT USED FOR UNKNOWN INDICATION
  3. INFLECTRA [Suspect]
     Active Substance: INFLIXIMAB-DYYB
     Route: 042
     Dates: start: 20190808, end: 20190808
  4. INFLECTRA [Suspect]
     Active Substance: INFLIXIMAB-DYYB
     Route: 042
     Dates: start: 20190909, end: 20190909
  5. PREDNISONE. [Suspect]
     Active Substance: PREDNISONE
     Indication: PRODUCT USED FOR UNKNOWN INDICATION
     Route: 065
     Dates: start: 2015
  6. PENTASA [Concomitant]
     Active Substance: MESALAMINE
     Indication: PRODUCT USED FOR UNKNOWN INDICATION
     Route: 065
  7. PLANTAGO OVATA [Concomitant]
     Active Substance: HERBALS\PLANTAGO OVATA LEAF
     Indication: PRODUCT USED FOR UNKNOWN INDICATION
  8. INFLECTRA [Suspect]
     Active Substance: INFLIXIMAB-DYYB
     Route: 042
     Dates: start: 201909, end: 2019
  9. INFLECTRA [Suspect]
     Active Substance: INFLIXIMAB-DYYB
     Route: 042
     Dates: start: 20200103, end: 20200103
  10. INFLECTRA [Suspect]
     Active Substance: INFLIXIMAB-DYYB
     Route: 042
     Dates: start: 20200615, end: 20200615
  11. MIDAZOLAM. [Concomitant]
     Active Substance: MIDAZOLAM
     Indication: COLONOSCOPY
     Dates: start: 20180705, end: 20180705
  12. INFLECTRA [Suspect]
     Active Substance: INFLIXIMAB-DYYB
     Indication: CROHN^S DISEASE
     Route: 042
     Dates: start: 20190722, end: 20190722
  13. HUMIRA [Suspect]
     Active Substance: ADALIMUMAB
     Indication: PRODUCT USED FOR UNKNOWN INDICATION
     Route: 058
     Dates: end: 201906
  14. VANCOMYCIN HYDROCHLORIDE. [Suspect]
     Active Substance: VANCOMYCIN HYDROCHLORIDE
     Indication: CROHN^S DISEASE
     Route: 065
  15. INFLECTRA [Suspect]
     Active Substance: INFLIXIMAB-DYYB
     Route: 042
     Dates: start: 20191104, end: 20191104
  16. INFLECTRA [Suspect]
     Active Substance: INFLIXIMAB-DYYB
     Route: 042
     Dates: start: 20200423, end: 20200423
  17. METAMUCIL [Concomitant]
     Active Substance: PLANTAGO SEED
     Indication: PRODUCT USED FOR UNKNOWN INDICATION
  18. INFLECTRA [Suspect]
     Active Substance: INFLIXIMAB-DYYB
     Route: 042
     Dates: start: 20200226, end: 20200226
  19. FENTANYL. [Concomitant]
     Active Substance: FENTANYL
     Indication: COLONOSCOPY
     Dates: start: 20180705, end: 20180705
  20. VANCOMYCIN [Suspect]
     Active Substance: VANCOMYCIN
     Indication: CROHN^S DISEASE
     Route: 065
  21. INFLECTRA [Suspect]
     Active Substance: INFLIXIMAB-DYYB
     Route: 042
     Dates: start: 20191231, end: 20191231
  22. INFLECTRA [Suspect]
     Active Substance: INFLIXIMAB-DYYB
     Route: 042
     Dates: start: 20200810
  23. CODEINE [Concomitant]
     Active Substance: CODEINE
     Indication: DIARRHOEA
     Dosage: 30 MG 2 TABLETS
     Dates: start: 2000
  24. IMURAN [Concomitant]
     Active Substance: AZATHIOPRINE
     Indication: PRODUCT USED FOR UNKNOWN INDICATION

REACTIONS (36)
  - Faecal calprotectin increased [Unknown]
  - Red man syndrome [Unknown]
  - Therapeutic product effect delayed [Unknown]
  - Abdominal pain [Unknown]
  - Clavicle fracture [Recovered/Resolved]
  - Diarrhoea [Not Recovered/Not Resolved]
  - Defaecation urgency [Recovered/Resolved]
  - Staphylococcal infection [Recovered/Resolved]
  - Frequent bowel movements [Unknown]
  - Drug ineffective [Unknown]
  - Acne [Unknown]
  - Pain [Unknown]
  - Weight decreased [Recovered/Resolved]
  - Malaise [Not Recovered/Not Resolved]
  - Drug intolerance [Unknown]
  - Magnesium deficiency [Unknown]
  - Crohn^s disease [Unknown]
  - Diarrhoea [Recovering/Resolving]
  - Diarrhoea [Recovered/Resolved]
  - Clostridium difficile infection [Unknown]
  - Affective disorder [Unknown]
  - Bone disorder [Unknown]
  - Myalgia [Unknown]
  - Muscle spasms [Unknown]
  - Gastrointestinal pain [Unknown]
  - Intestinal ulcer [Recovered/Resolved]
  - Off label use [Recovered/Resolved]
  - Constipation [Unknown]
  - Therapeutic product effect decreased [Unknown]
  - Drug specific antibody [Unknown]
  - Gastrointestinal inflammation [Unknown]
  - Arthralgia [Not Recovered/Not Resolved]
  - Faeces soft [Unknown]
  - Small intestinal obstruction [Recovered/Resolved]
  - Small intestinal resection [Unknown]
  - Condition aggravated [Unknown]

NARRATIVE: CASE EVENT DATE: 201301
